FAERS Safety Report 5424555-3 (Version None)
Quarter: 2007Q3

REPORT INFORMATION
  Report Type: 
  Country: None (occurrence: None)
  Receive Date: 20070726
  Receipt Date: 20070403
  Transmission Date: 20080115
  Serious: No
  Sender: FDA-Public Use
  Company Number: POMP-11008

PATIENT
  Age: 52 Year
  Sex: Female
  Weight: 62.8232 kg

DRUGS (1)
  1. MYOZYME [Suspect]
     Indication: GLYCOGEN STORAGE DISEASE TYPE II
     Dosage: 20 MG/KG Q2WKS IV
     Route: 042
     Dates: start: 20070221, end: 20070307

REACTIONS (2)
  - CHEST PAIN [None]
  - DYSPNOEA [None]
